FAERS Safety Report 8212362-8 (Version None)
Quarter: 2012Q1

REPORT INFORMATION
  Report Type: 
  Country: None (occurrence: None)
  Receive Date: 20120315
  Receipt Date: 20120307
  Transmission Date: 20120608
  Serious: Yes (Hospitalization)
  Sender: FDA-Public Use
  Company Number: US-JNJFOC-20100101889

PATIENT
  Sex: Male

DRUGS (19)
  1. ABIRATERONE ACETATE [Suspect]
     Route: 048
     Dates: start: 20091125, end: 20091208
  2. ZOLEDRONOC ACID [Concomitant]
     Indication: METASTASES TO BONE
     Route: 042
     Dates: start: 20080910
  3. ABIRATERONE ACETATE [Suspect]
     Indication: PROSTATE CANCER METASTATIC
     Route: 048
     Dates: start: 20091212
  4. ASCORBIC ACID [Concomitant]
     Indication: MEDICAL DIET
     Route: 048
     Dates: start: 19760101
  5. CALCIUM [Concomitant]
     Indication: METASTASES TO BONE
     Route: 048
     Dates: start: 20080701
  6. ERGOCALCIFEROL [Concomitant]
     Indication: METASTASES TO BONE
     Route: 048
     Dates: start: 20080701
  7. GOSERELIN [Concomitant]
     Indication: PROSTATE CANCER
     Route: 030
     Dates: start: 20080701
  8. ROSIGLITAZONE [Concomitant]
     Indication: DIABETES MELLITUS
     Route: 048
     Dates: start: 20091105
  9. PREDNISONE TAB [Suspect]
     Route: 048
     Dates: start: 20091211
  10. OMEPRAZOLE [Concomitant]
     Indication: GASTROOESOPHAGEAL REFLUX DISEASE
     Route: 048
     Dates: start: 19920101
  11. COLACE [Concomitant]
     Indication: CONSTIPATION
     Route: 048
     Dates: start: 20091204
  12. ATORVASTATIN [Concomitant]
     Indication: HYPERLIPIDAEMIA
     Route: 048
     Dates: start: 20020101
  13. FENOFIBRATE [Concomitant]
     Indication: HYPERLIPIDAEMIA
     Route: 048
     Dates: start: 20040101
  14. IMODIUM [Concomitant]
     Indication: DIARRHOEA
     Route: 048
     Dates: start: 20091125
  15. A AND D OINTMENT [Concomitant]
     Indication: HAEMORRHOIDS
     Route: 061
     Dates: start: 20091204
  16. PREDNISONE TAB [Suspect]
     Indication: PROSTATE CANCER METASTATIC
     Route: 048
     Dates: start: 20091125, end: 20091208
  17. DALTEPARIN SODIUM [Concomitant]
     Indication: THROMBOSIS PROPHYLAXIS
     Route: 058
     Dates: start: 20080701
  18. LISINOPRIL [Concomitant]
     Indication: HYPERTENSION
     Route: 048
     Dates: start: 20060101
  19. INDOMETHACIN [Concomitant]
     Indication: GOUT
     Route: 048
     Dates: start: 20091105

REACTIONS (3)
  - GASTROENTERITIS [None]
  - BLOOD UREA INCREASED [None]
  - LYMPHOPENIA [None]
